FAERS Safety Report 8184995-9 (Version None)
Quarter: 2012Q1

REPORT INFORMATION
  Report Type: 
  Country: None (occurrence: None)
  Receive Date: 20120305
  Receipt Date: 20120228
  Transmission Date: 20120608
  Serious: Yes (Hospitalization)
  Sender: FDA-Public Use
  Company Number: FR-BAYER-2012-020312

PATIENT
  Age: 85 Year
  Sex: Female

DRUGS (10)
  1. DIGOXIN [Concomitant]
  2. POLYETHYLENE GLYCOL [Concomitant]
  3. AMLODIPINE [Concomitant]
  4. CIPROFLOXACIN [Suspect]
     Dosage: UNK
     Dates: start: 20120123, end: 20120125
  5. TEGRETOL [Suspect]
     Dosage: UNK
     Dates: start: 20120105, end: 20120125
  6. PIPERACILLIN AND TAZOBACTAM [Suspect]
     Dosage: UNK
     Dates: start: 20120123, end: 20120201
  7. LAMICTAL [Concomitant]
     Dosage: UNK
     Dates: start: 20120125
  8. POTASSIUM CHLORIDE [Concomitant]
  9. PROCORALAN [Concomitant]
  10. PANTOPRAZOLE [Concomitant]

REACTIONS (2)
  - CHOLESTASIS [None]
  - CYTOLYTIC HEPATITIS [None]
